FAERS Safety Report 8917234 (Version 2)
Quarter: 2012Q4

REPORT INFORMATION
  Report Type: 
  Country: VE (occurrence: VE)
  Receive Date: 20121120
  Receipt Date: 20121129
  Transmission Date: 20130627
  Serious: No
  Sender: FDA-Public Use
  Company Number: VE-PFIZER INC-2012289341

PATIENT
  Age: 48 Year
  Sex: Male

DRUGS (2)
  1. LIPITOR [Suspect]
     Indication: HEART DISORDER
     Dosage: 20 mg, (half of 40mg) once daily
     Route: 048
     Dates: start: 20121016, end: 201211
  2. ZOLOFT [Concomitant]
     Indication: DEPRESSION
     Dosage: 25 mg, once daily
     Route: 048
     Dates: start: 20121016

REACTIONS (8)
  - Pollakiuria [Recovered/Resolved]
  - Pain in extremity [Recovered/Resolved]
  - Fatigue [Recovered/Resolved]
  - Agitation [Recovered/Resolved]
  - Nausea [Not Recovered/Not Resolved]
  - Hypotension [Not Recovered/Not Resolved]
  - Asthenia [Not Recovered/Not Resolved]
  - Discomfort [Not Recovered/Not Resolved]
